FAERS Safety Report 6915249-3 (Version None)
Quarter: 2010Q3

REPORT INFORMATION
  Report Type: 
  Country: None (occurrence: None)
  Receive Date: 20100809
  Receipt Date: 20091016
  Transmission Date: 20110219
  Serious: Yes (Hospitalization)
  Sender: FDA-Public Use
  Company Number: US-ABBOTT-09P-163-0599373-00

PATIENT
  Sex: Female

DRUGS (1)
  1. DEPAKOTE ER [Suspect]
     Indication: DIABETIC NEUROPATHY
     Dosage: DOSE UNKNOWN
     Dates: end: 20090801

REACTIONS (3)
  - AMMONIA INCREASED [None]
  - HEPATIC FAILURE [None]
  - LIVER FUNCTION TEST ABNORMAL [None]
